FAERS Safety Report 8426519-4 (Version None)
Quarter: 2012Q2

REPORT INFORMATION
  Report Type: 
  Country: None (occurrence: None)
  Receive Date: 20120611
  Receipt Date: 20120601
  Transmission Date: 20120825
  Serious: Yes (Other)
  Sender: FDA-Public Use
  Company Number: BR-SANOFI-AVENTIS-2012SA039489

PATIENT
  Age: 41 Year
  Sex: Female
  Weight: 91 kg

DRUGS (6)
  1. METFORMIN HCL [Concomitant]
     Route: 048
     Dates: start: 20120101
  2. LOSARTAN [Concomitant]
     Indication: BLOOD PRESSURE
     Route: 048
     Dates: start: 20080101
  3. KETOPROFEN [Concomitant]
     Route: 048
     Dates: start: 20120530
  4. AUTOPEN 24 [Suspect]
     Indication: DEVICE THERAPY
     Dates: start: 20060101
  5. LANTUS [Suspect]
     Indication: TYPE 2 DIABETES MELLITUS
     Route: 058
     Dates: start: 20060101
  6. AMLODIPINE [Concomitant]
     Indication: BLOOD PRESSURE
     Route: 048

REACTIONS (3)
  - PAIN [None]
  - UTERINE POLYP [None]
  - ABDOMINAL PAIN [None]
